FAERS Safety Report 20566455 (Version 2)
Quarter: 2022Q1

REPORT INFORMATION
  Report Type: Spontaneous
  Country: US (occurrence: US)
  Receive Date: 20220308
  Receipt Date: 20220308
  Transmission Date: 20220423
  Serious: No
  Sender: FDA-Public Use
  Company Number: US-PFIZER INC-202100993118

PATIENT
  Age: 43 Year
  Sex: Female

DRUGS (1)
  1. CABERGOLINE [Suspect]
     Active Substance: CABERGOLINE
     Dosage: UNK
     Route: 067
     Dates: start: 2019

REACTIONS (6)
  - Thinking abnormal [Unknown]
  - Disturbance in attention [Unknown]
  - Aphasia [Unknown]
  - Memory impairment [Unknown]
  - Nausea [Unknown]
  - Appetite disorder [Unknown]
